FAERS Safety Report 7624781 (Version 2)
Quarter: 2012Q4

REPORT INFORMATION
  Report Type: 
  Country: US (occurrence: US)
  Receive Date: 20101012
  Receipt Date: 20121221
  Transmission Date: 20130627
  Serious: No
  Sender: FDA-Public Use
  Company Number: US-BIOGENIDEC-2010BI034841

PATIENT
  Age: 49 Year
  Sex: Female

DRUGS (3)
  1. TYSABRI [Suspect]
     Indication: MULTIPLE SCLEROSIS
     Route: 042
     Dates: start: 20091216, end: 20100524
  2. TYSABRI [Suspect]
     Indication: MULTIPLE SCLEROSIS
     Route: 042
     Dates: start: 20101027
  3. AVONEX [Concomitant]
     Indication: MULTIPLE SCLEROSIS
     Route: 030
     Dates: start: 20101001

REACTIONS (3)
  - Poor venous access [Not Recovered/Not Resolved]
  - Infusion site pain [Recovered/Resolved]
  - Blood pressure decreased [Recovered/Resolved]
